FAERS Safety Report 25998456 (Version 1)
Quarter: 2025Q4

REPORT INFORMATION
  Report Type: Other
  Country: EU (occurrence: EU)
  Receive Date: 20251105
  Receipt Date: 20251105
  Transmission Date: 20260117
  Serious: Yes (Hospitalization)
  Sender: ZYDUS PHARM
  Company Number: None

PATIENT

DRUGS (1)
  1. SERTRALINE [Suspect]
     Active Substance: SERTRALINE HYDROCHLORIDE
     Indication: Depression
     Dosage: 200 MILLIGRAM
     Route: 048
     Dates: start: 202401, end: 20240814

REACTIONS (1)
  - Multiple acyl-coenzyme A dehydrogenase deficiency [Unknown]

NARRATIVE: CASE EVENT DATE: 20240601
